FAERS Safety Report 24146797 (Version 1)
Quarter: 2024Q3

REPORT INFORMATION
  Report Type: Spontaneous
  Country: BE (occurrence: BE)
  Receive Date: 20240729
  Receipt Date: 20240729
  Transmission Date: 20241016
  Serious: Yes (Other)
  Sender: AUROBINDO
  Company Number: BE-ROCHE-2736476

PATIENT
  Age: 71 Year
  Sex: Female
  Weight: 76 kg

DRUGS (36)
  1. CARBOPLATIN [Suspect]
     Active Substance: CARBOPLATIN
     Indication: Small cell lung cancer extensive stage
     Dosage: 626 MILLIGRAM
     Route: 065
     Dates: start: 20200506
  2. ETOPOSIDE [Suspect]
     Active Substance: ETOPOSIDE
     Indication: Small cell lung cancer extensive stage
     Dosage: 187 MILLIGRAM
     Route: 042
     Dates: start: 20200506
  3. ATEZOLIZUMAB [Suspect]
     Active Substance: ATEZOLIZUMAB
     Indication: Small cell lung cancer extensive stage
     Dosage: UNK
     Route: 042
  4. ATEZOLIZUMAB [Suspect]
     Active Substance: ATEZOLIZUMAB
     Dosage: 1200 MILLIGRAM, EVERY 3 WEEKS (SUBSEQUENT DOSING ON 02/JUN/2020, 30/JUN/2020, 04/AUG/2020, 01/SEP/20
     Route: 042
     Dates: start: 20200506
  5. HYCAMTIN [Concomitant]
     Active Substance: TOPOTECAN HYDROCHLORIDE
     Indication: Product used for unknown indication
     Dosage: UNK
     Route: 065
     Dates: start: 20201210, end: 20210429
  6. OXALIPLATIN [Concomitant]
     Active Substance: OXALIPLATIN
     Indication: Neoplasm malignant
     Dosage: UNK
     Route: 065
  7. ALIZAPRIDE [Concomitant]
     Active Substance: ALIZAPRIDE
     Indication: Premedication
     Dosage: 50 MILLIGRAM
     Route: 065
     Dates: start: 20200805, end: 20200806
  8. ALIZAPRIDE [Concomitant]
     Active Substance: ALIZAPRIDE
     Dosage: 50 MILLIGRAM
     Route: 065
     Dates: start: 20200507, end: 20200508
  9. ALIZAPRIDE [Concomitant]
     Active Substance: ALIZAPRIDE
     Dosage: 50 MILLIGRAM
     Route: 065
     Dates: start: 20200701, end: 20200702
  10. ALIZAPRIDE [Concomitant]
     Active Substance: ALIZAPRIDE
     Dosage: 50 MILLIGRAM
     Route: 065
     Dates: start: 20200902, end: 20200903
  11. ALIZAPRIDE [Concomitant]
     Active Substance: ALIZAPRIDE
     Dosage: 50 MILLIGRAM
     Route: 065
     Dates: start: 20200603, end: 20200604
  12. ALIZAPRIDE [Concomitant]
     Active Substance: ALIZAPRIDE
     Dosage: 50 MILLIGRAM
     Route: 065
     Dates: start: 20201007, end: 20201008
  13. TRAMADOL [Concomitant]
     Active Substance: TRAMADOL\TRAMADOL HYDROCHLORIDE
     Indication: Product used for unknown indication
     Dosage: UNK
     Route: 065
  14. BECLOMETHASONE DIPROPIONATE\FORMOTEROL FUMARATE [Concomitant]
     Active Substance: BECLOMETHASONE DIPROPIONATE\FORMOTEROL FUMARATE
     Indication: Product used for unknown indication
     Dosage: UNK
     Route: 065
  15. LIPEGFILGRASTIM [Concomitant]
     Active Substance: LIPEGFILGRASTIM
     Indication: Product used for unknown indication
     Dosage: UNK
     Route: 065
     Dates: start: 20201215
  16. ONDANSETRON [Concomitant]
     Active Substance: ONDANSETRON
     Indication: Premedication
     Dosage: 8 MILLIGRAM
     Route: 065
     Dates: start: 20200901, end: 20200901
  17. ONDANSETRON [Concomitant]
     Active Substance: ONDANSETRON
     Dosage: 8 MILLIGRAM
     Route: 065
     Dates: start: 20200630, end: 20200702
  18. ONDANSETRON [Concomitant]
     Active Substance: ONDANSETRON
     Dosage: 8 MILLIGRAM
     Route: 065
     Dates: start: 20200630, end: 20200630
  19. ONDANSETRON [Concomitant]
     Active Substance: ONDANSETRON
     Dosage: 8 MILLIGRAM
     Route: 065
     Dates: start: 20201006, end: 20201008
  20. ONDANSETRON [Concomitant]
     Active Substance: ONDANSETRON
     Dosage: 8 MILLIGRAM
     Route: 065
     Dates: start: 20200506, end: 20200506
  21. ONDANSETRON [Concomitant]
     Active Substance: ONDANSETRON
     Dosage: 8 MILLIGRAM
     Route: 065
     Dates: start: 20200901, end: 20200903
  22. ONDANSETRON [Concomitant]
     Active Substance: ONDANSETRON
     Dosage: 8 MILLIGRAM
     Route: 065
     Dates: start: 20200804, end: 20200806
  23. ONDANSETRON [Concomitant]
     Active Substance: ONDANSETRON
     Dosage: 8 MILLIGRAM
     Route: 065
     Dates: start: 20201006, end: 20201006
  24. ONDANSETRON [Concomitant]
     Active Substance: ONDANSETRON
     Dosage: 8 MILLIGRAM
     Route: 065
     Dates: start: 20200602, end: 20200602
  25. ONDANSETRON [Concomitant]
     Active Substance: ONDANSETRON
     Dosage: 8 MILLIGRAM
     Route: 065
     Dates: start: 20200506, end: 20200508
  26. ONDANSETRON [Concomitant]
     Active Substance: ONDANSETRON
     Dosage: 8 MILLIGRAM
     Route: 065
     Dates: start: 20200804, end: 20200804
  27. ONDANSETRON [Concomitant]
     Active Substance: ONDANSETRON
     Dosage: 8 MILLIGRAM
     Route: 065
     Dates: start: 20200602, end: 20200604
  28. INFLUENZA VIRUS VACCINE [Concomitant]
     Active Substance: INFLUENZA VIRUS VACCINE
     Indication: Product used for unknown indication
     Dosage: UNK
     Route: 065
     Dates: start: 20201104, end: 20201104
  29. FOSFOMYCIN [Concomitant]
     Active Substance: FOSFOMYCIN
     Indication: Product used for unknown indication
     Dosage: UNK
     Route: 065
  30. LACTULOSE [Concomitant]
     Active Substance: LACTULOSE
     Indication: Constipation
     Dosage: UNK UNK, AS NECESSARY
     Route: 065
     Dates: start: 20200508, end: 20201019
  31. CELECOXIB [Concomitant]
     Active Substance: CELECOXIB
     Indication: Product used for unknown indication
     Dosage: UNK
     Route: 065
  32. ENOXAPARIN [Concomitant]
     Active Substance: ENOXAPARIN
     Indication: Product used for unknown indication
     Dosage: UNK
     Route: 065
  33. FLUOROURACIL [Concomitant]
     Active Substance: FLUOROURACIL
     Indication: Neoplasm malignant
     Dosage: UNK
     Route: 065
  34. METHYLPREDNISOLONE [Concomitant]
     Active Substance: METHYLPREDNISOLONE
     Indication: Product used for unknown indication
     Dosage: UNK
     Route: 065
     Dates: start: 20201209
  35. PANTOPRAZOLE [Concomitant]
     Active Substance: PANTOPRAZOLE
     Indication: Product used for unknown indication
     Dosage: UNK
     Route: 065
     Dates: start: 201311
  36. BUTCHERS BROOM [Concomitant]
     Indication: Peripheral venous disease
     Dosage: UNK
     Route: 065
     Dates: start: 2010

REACTIONS (2)
  - Hyperthyroidism [Recovered/Resolved]
  - Asthenia [Recovering/Resolving]

NARRATIVE: CASE EVENT DATE: 20201117
